FAERS Safety Report 22089976 (Version 3)
Quarter: 2023Q2

REPORT INFORMATION
  Report Type: Report from Study
  Country: JP (occurrence: JP)
  Receive Date: 20230313
  Receipt Date: 20230525
  Transmission Date: 20230722
  Serious: Yes (Death, Hospitalization)
  Sender: FDA-Public Use
  Company Number: JP-SERVIER-S23000612

PATIENT
  Age: 70 Year
  Sex: Female
  Weight: 62 kg

DRUGS (30)
  1. ONIVYDE [Suspect]
     Active Substance: IRINOTECAN HYDROCHLORIDE
     Indication: Pancreatic carcinoma
     Dosage: 70 MG/M2
     Route: 065
     Dates: start: 20210826, end: 20210826
  2. ONIVYDE [Suspect]
     Active Substance: IRINOTECAN HYDROCHLORIDE
     Dosage: 67 MG/M2
     Route: 065
     Dates: start: 20210910, end: 20210910
  3. ONIVYDE [Suspect]
     Active Substance: IRINOTECAN HYDROCHLORIDE
     Dosage: 67 MG/M2
     Route: 065
     Dates: start: 20210930, end: 20210930
  4. ONIVYDE [Suspect]
     Active Substance: IRINOTECAN HYDROCHLORIDE
     Dosage: 64 MG/M2
     Route: 065
     Dates: start: 20211014, end: 20211014
  5. ONIVYDE [Suspect]
     Active Substance: IRINOTECAN HYDROCHLORIDE
     Dosage: 64 MG/M2
     Route: 065
     Dates: start: 20211108, end: 20211108
  6. ONIVYDE [Suspect]
     Active Substance: IRINOTECAN HYDROCHLORIDE
     Dosage: 64 MG/M2
     Route: 065
     Dates: start: 20211122, end: 20211122
  7. ONIVYDE [Suspect]
     Active Substance: IRINOTECAN HYDROCHLORIDE
     Dosage: 64 MG/M2
     Route: 065
     Dates: start: 20211206, end: 20211206
  8. ONIVYDE [Suspect]
     Active Substance: IRINOTECAN HYDROCHLORIDE
     Dosage: 64 MG/M2
     Route: 065
     Dates: start: 20211221, end: 20211221
  9. ONIVYDE [Suspect]
     Active Substance: IRINOTECAN HYDROCHLORIDE
     Dosage: 64 MG/M2
     Route: 065
     Dates: start: 20220104, end: 20220104
  10. LEVOLEUCOVORIN CALCIUM [Concomitant]
     Active Substance: LEVOLEUCOVORIN CALCIUM
     Indication: Pancreatic carcinoma
     Dosage: 197 MG/M2
     Dates: start: 20210826, end: 20210826
  11. LEVOLEUCOVORIN CALCIUM [Concomitant]
     Active Substance: LEVOLEUCOVORIN CALCIUM
     Dosage: 200 MG/M2
     Dates: start: 20210910, end: 20210910
  12. LEVOLEUCOVORIN CALCIUM [Concomitant]
     Active Substance: LEVOLEUCOVORIN CALCIUM
     Dosage: 200 MG/M2
     Dates: start: 20210930, end: 20210930
  13. LEVOLEUCOVORIN CALCIUM [Concomitant]
     Active Substance: LEVOLEUCOVORIN CALCIUM
     Dosage: 193 MG/M2
     Dates: start: 20211014, end: 20211014
  14. LEVOLEUCOVORIN CALCIUM [Concomitant]
     Active Substance: LEVOLEUCOVORIN CALCIUM
     Dosage: 193 MG/M2
     Dates: start: 20211108, end: 20211108
  15. LEVOLEUCOVORIN CALCIUM [Concomitant]
     Active Substance: LEVOLEUCOVORIN CALCIUM
     Dosage: 193 MG/M2
     Dates: start: 20211122, end: 20211122
  16. LEVOLEUCOVORIN CALCIUM [Concomitant]
     Active Substance: LEVOLEUCOVORIN CALCIUM
     Dosage: 193 MG/M2
     Dates: start: 20211206, end: 20211206
  17. LEVOLEUCOVORIN CALCIUM [Concomitant]
     Active Substance: LEVOLEUCOVORIN CALCIUM
     Dosage: 193 MG/M2
     Dates: start: 20211221, end: 20211221
  18. LEVOLEUCOVORIN CALCIUM [Concomitant]
     Active Substance: LEVOLEUCOVORIN CALCIUM
     Dosage: 192 MG/M2
     Dates: start: 20220104, end: 20220104
  19. FLUOROURACIL [Concomitant]
     Active Substance: FLUOROURACIL
     Indication: Pancreatic carcinoma
     Dosage: 2400 MG/M2
     Route: 065
     Dates: start: 20210826, end: 20210828
  20. FLUOROURACIL [Concomitant]
     Active Substance: FLUOROURACIL
     Dosage: 2380 MG/M2
     Route: 065
     Dates: start: 20210910, end: 20210912
  21. FLUOROURACIL [Concomitant]
     Active Substance: FLUOROURACIL
     Dosage: 2380 MG/M2
     Route: 065
     Dates: start: 20210930, end: 20211002
  22. FLUOROURACIL [Concomitant]
     Active Substance: FLUOROURACIL
     Dosage: 2387 MG/M2
     Route: 065
     Dates: start: 20211014, end: 20211016
  23. FLUOROURACIL [Concomitant]
     Active Substance: FLUOROURACIL
     Dosage: 2387 MG/M2
     Route: 065
     Dates: start: 20211108, end: 20211110
  24. FLUOROURACIL [Concomitant]
     Active Substance: FLUOROURACIL
     Dosage: 2387 MG/M2
     Route: 065
     Dates: start: 20211122, end: 20211124
  25. FLUOROURACIL [Concomitant]
     Active Substance: FLUOROURACIL
     Dosage: 2387 MG/M2
     Route: 065
     Dates: start: 20211206, end: 20211208
  26. FLUOROURACIL [Concomitant]
     Active Substance: FLUOROURACIL
     Dosage: 2387 MG/M2
     Route: 065
     Dates: start: 20211221, end: 20211223
  27. FLUOROURACIL [Concomitant]
     Active Substance: FLUOROURACIL
     Dosage: 2371 MG/M2
     Route: 065
     Dates: start: 20220104, end: 20220106
  28. DEXAMETHASONE [Concomitant]
     Active Substance: DEXAMETHASONE
     Indication: Chemotherapy side effect prophylaxis
     Dosage: UNK
     Route: 065
  29. PALONOSETRON HYDROCHLORIDE [Concomitant]
     Active Substance: PALONOSETRON HYDROCHLORIDE
     Indication: Chemotherapy side effect prophylaxis
     Dosage: UNK
     Route: 065
  30. ATROPINE SULFATE [Concomitant]
     Active Substance: ATROPINE SULFATE
     Indication: Chemotherapy side effect prophylaxis
     Dosage: UNK
     Route: 065

REACTIONS (3)
  - Malignant neoplasm progression [Fatal]
  - Interstitial lung disease [Fatal]
  - Off label use [Unknown]

NARRATIVE: CASE EVENT DATE: 20210826
